FAERS Safety Report 9281797 (Version 2)
Quarter: 2013Q3

REPORT INFORMATION
  Report Type: Spontaneous
  Country: US (occurrence: US)
  Receive Date: 20130510
  Receipt Date: 20130906
  Transmission Date: 20140515
  Serious: Yes (Hospitalization, Other)
  Sender: FDA-Public Use
  Company Number: US-B.I. PHARMACEUTICALS,INC./RIDGEFIELD-2013-BI-13018BP

PATIENT
  Age: 61 Year
  Sex: Male
  Weight: 81.65 kg

DRUGS (12)
  1. PRADAXA [Suspect]
     Indication: ANTICOAGULANT THERAPY
     Dosage: 300 MG
     Dates: start: 20110818, end: 20120311
  2. PRADAXA [Suspect]
     Indication: ATRIAL FIBRILLATION
  3. METFORMIN [Concomitant]
     Dosage: 500 MG
  4. LEXAPRO [Concomitant]
     Dosage: 20 MG
  5. PLAVIX [Concomitant]
     Dosage: 75 MG
  6. RAMIPRIL [Concomitant]
     Dosage: 2.5 MG
  7. ZOLPIDEM [Concomitant]
     Dosage: 10 MG
  8. TRAZODONE [Concomitant]
     Dosage: 300 MG
  9. ASPIRIN [Concomitant]
     Dosage: 81 MG
  10. ATORVASTATIN [Concomitant]
     Dosage: 40 MG
  11. DICLOFENAC [Concomitant]
     Dosage: 150 MG
  12. LAMICTAL [Concomitant]
     Dosage: 100 MG

REACTIONS (8)
  - Oesophageal haemorrhage [Recovered/Resolved]
  - Haemoptysis [Recovered/Resolved]
  - Haemorrhagic anaemia [Unknown]
  - Coagulopathy [Unknown]
  - Acute respiratory failure [Unknown]
  - Renal failure acute [Unknown]
  - Metabolic encephalopathy [Unknown]
  - Pneumonia aspiration [Unknown]
